FAERS Safety Report 5144401-5 (Version None)
Quarter: 2006Q4

REPORT INFORMATION
  Report Type: 
  Country: None (occurrence: None)
  Receive Date: 20061030
  Receipt Date: 20061011
  Transmission Date: 20070319
  Serious: Yes (Hospitalization)
  Sender: FDA-Public Use
  Company Number: 2006SP000053

PATIENT
  Age: 80 Year
  Sex: Female
  Weight: 101.1521 kg

DRUGS (10)
  1. CELESTONE SOLUSPAN [Suspect]
     Indication: NERVE BLOCK
     Dosage: 18 MG;ONCE;ED
     Route: 008
     Dates: start: 20060817, end: 20060817
  2. LIDOCAINE HYDROCHLORIDE [Suspect]
     Dosage: 1 PCT; ED
     Route: 008
     Dates: start: 20060817, end: 20060817
  3. METFORMIN [Concomitant]
  4. GLIPIZIDE [Concomitant]
  5. LORTAB [Concomitant]
  6. QUININE SULFATE [Concomitant]
  7. LORAZEPAM [Suspect]
     Dosage: 1 MG;PO
     Route: 048
     Dates: start: 20060817
  8. ATENOLOL [Concomitant]
  9. REGLAN [Concomitant]
  10. LISINOPRIL [Concomitant]

REACTIONS (6)
  - HYPOAESTHESIA [None]
  - MUSCLE SPASMS [None]
  - PARALYSIS FLACCID [None]
  - PARAPARESIS [None]
  - POST PROCEDURAL COMPLICATION [None]
  - SPINAL CORD OEDEMA [None]
